FAERS Safety Report 4390416-4 (Version None)
Quarter: 2004Q2

REPORT INFORMATION
  Report Type: 
  Country: None (occurrence: None)
  Receive Date: 20040628
  Receipt Date: 20040616
  Transmission Date: 20050107
  Serious: Yes (Other)
  Sender: FDA-Public Use
  Company Number: 2004040738

PATIENT
  Age: 36 Year
  Sex: Male

DRUGS (1)
  1. MINOXIDIL [Suspect]
     Indication: ALOPECIA
     Dosage: UNSPECIFIED, PERIODICALLY, TOP-

REACTIONS (4)
  - ESCHERICHIA URINARY TRACT INFECTION [None]
  - GENITAL DISCHARGE [None]
  - GENITAL ULCERATION [None]
  - PYODERMA GANGRENOSUM [None]
